FAERS Safety Report 18476495 (Version 1)
Quarter: 2020Q4

REPORT INFORMATION
  Report Type: Spontaneous
  Country: US (occurrence: US)
  Receive Date: 20201106
  Receipt Date: 20201106
  Transmission Date: 20210114
  Serious: No
  Sender: FDA-Public Use
  Company Number: US-PERRIGO-19US011830

PATIENT
  Age: 61 Year
  Sex: Male
  Weight: 113.38 kg

DRUGS (1)
  1. CICLOPIROX. [Suspect]
     Active Substance: CICLOPIROX
     Indication: ONYCHOMYCOSIS
     Dosage: THIN COAT, QD
     Route: 061
     Dates: start: 20190815, end: 201909

REACTIONS (2)
  - Application site discomfort [Recovering/Resolving]
  - Application site discolouration [Not Recovered/Not Resolved]

NARRATIVE: CASE EVENT DATE: 201909
